FAERS Safety Report 5851653-2 (Version None)
Quarter: 2008Q3

REPORT INFORMATION
  Report Type: 
  Country: None (occurrence: None)
  Receive Date: 20080820
  Receipt Date: 20080811
  Transmission Date: 20090109
  Serious: Yes (Hospitalization)
  Sender: FDA-Public Use
  Company Number: US-ELI_LILLY_AND_COMPANY-US200807002876

PATIENT
  Sex: Male
  Weight: 115.65 kg

DRUGS (13)
  1. HUMATROPE [Suspect]
     Indication: HYPOPITUITARISM
     Dosage: 0.1 MG, EACH EVENING
     Dates: start: 20050831
  2. OXYGEN [Concomitant]
     Route: 045
     Dates: start: 20070801
  3. ANDROGEL [Concomitant]
     Dosage: 7.5 G, DAILY (1/D)
  4. DITROPAN XL [Concomitant]
     Dosage: UNK, DAILY (1/D)
  5. EFFEXOR [Concomitant]
     Dosage: 75 MG, DAILY (1/D)
  6. HYDROCHLOROTHIAZIDE [Concomitant]
     Dosage: 25 MG, 2/D
  7. NORVASC [Concomitant]
     Dosage: 10 MG, DAILY (1/D)
  8. POTASSIUM CHLORIDE [Concomitant]
     Dosage: 20 MEQ, DAILY (1/D)
  9. LISINOPRIL [Concomitant]
     Dosage: 5 MG, DAILY (1/D)
  10. SYNTHROID [Concomitant]
     Dosage: 50 UG, DAILY (1/D)
  11. VITAMIN B-12 [Concomitant]
     Dosage: 500 UG, DAILY (1/D)
  12. FISH OIL [Concomitant]
     Dosage: 1 G, DAILY (1/D)
  13. MULTI-VITAMIN [Concomitant]
     Dosage: UNK, DAILY (1/D)

REACTIONS (6)
  - GASTROOESOPHAGEAL REFLUX DISEASE [None]
  - HIATUS HERNIA [None]
  - HYPERTENSION [None]
  - OSTEOARTHRITIS [None]
  - OXYGEN SATURATION DECREASED [None]
  - VITAMIN B12 DEFICIENCY [None]
